FAERS Safety Report 20258021 (Version 1)
Quarter: 2021Q4

REPORT INFORMATION
  Report Type: Spontaneous
  Country: US (occurrence: None)
  Receive Date: 20211229
  Receipt Date: 20211229
  Transmission Date: 20220303
  Serious: No
  Sender: FDA-Public Use
  Company Number: None

PATIENT
  Age: 18 Year
  Sex: Female
  Weight: 69.3 kg

DRUGS (1)
  1. LUPRON [Suspect]
     Active Substance: LEUPROLIDE ACETATE
     Indication: Pelvic pain
     Dosage: OTHER FREQUENCY : EVERY 28 DAYS;?
     Route: 030
     Dates: start: 20211210, end: 20211224

REACTIONS (7)
  - Vomiting [None]
  - Vaginal haemorrhage [None]
  - Hot flush [None]
  - Constipation [None]
  - Syncope [None]
  - Dry skin [None]
  - Drug hypersensitivity [None]

NARRATIVE: CASE EVENT DATE: 20211222
